FAERS Safety Report 8780964 (Version 3)
Quarter: 2012Q4

REPORT INFORMATION
  Report Type: 
  Country: US (occurrence: US)
  Receive Date: 20120913
  Receipt Date: 20121028
  Transmission Date: 20130627
  Serious: No
  Sender: FDA-Public Use
  Company Number: US-009507513-1209USA002986

PATIENT
  Sex: Female
  Weight: 49.43 kg

DRUGS (6)
  1. PEGINTRON [Suspect]
     Indication: HEPATITIS C
     Dosage: 80 Microgram/0.5 ml, qw
     Route: 058
  2. RIBAPAK [Suspect]
     Dosage: 1000/DAY
  3. ACETAMINOPHEN (+) HYDROCODONE BITARTRATE [Concomitant]
  4. LEVOTHYROXINE SODIUM [Concomitant]
  5. ALPRAZOLAM [Concomitant]
  6. ACYCLOVIR [Concomitant]

REACTIONS (4)
  - Headache [Recovered/Resolved]
  - Dizziness [Recovered/Resolved]
  - Drug dose omission [Unknown]
  - Incorrect storage of drug [Unknown]
